FAERS Safety Report 7875687-1 (Version None)
Quarter: 2011Q4

REPORT INFORMATION
  Report Type: 
  Country: None (occurrence: None)
  Receive Date: 20111031
  Receipt Date: 20111020
  Transmission Date: 20120403
  Serious: Yes (Other)
  Sender: FDA-Public Use
  Company Number: JP-JNJFOC-20111011245

PATIENT
  Age: 69 Year
  Sex: Male

DRUGS (2)
  1. RIUP 1% [Suspect]
     Indication: ANDROGENETIC ALOPECIA
     Dosage: FOR TWO TO THREE YEARS
     Route: 061
  2. RIUP 1% [Suspect]
     Route: 061

REACTIONS (1)
  - ATRIAL FLUTTER [None]
